FAERS Safety Report 8863108 (Version 1)
Quarter: 2012Q4

REPORT INFORMATION
  Report Type: 
  Country: ES (occurrence: ES)
  Receive Date: 20121026
  Receipt Date: 20121026
  Transmission Date: 20130627
  Serious: Yes (Hospitalization)
  Sender: FDA-Public Use
  Company Number: ES-009507513-2012SP024325

PATIENT
  Age: 44 Year
  Sex: Male

DRUGS (5)
  1. VICTRELIS [Suspect]
     Indication: HEPATITIS C
     Dosage: 1.2 g, TID
     Route: 048
     Dates: start: 20120210, end: 20120227
  2. COPEGUS [Suspect]
     Indication: HEPATITIS C
     Route: 048
     Dates: start: 20120113, end: 20120227
  3. PEGASYS [Suspect]
     Indication: HEPATITIS C
     Dosage: 180 mcg weekly
     Route: 058
     Dates: start: 20120113, end: 20120227
  4. ISENTRESS [Concomitant]
     Route: 048
     Dates: start: 20120120
  5. TRUVADA [Concomitant]
     Indication: HIV INFECTION
     Route: 048
     Dates: start: 20110111

REACTIONS (3)
  - Face oedema [Recovered/Resolved]
  - Oedema peripheral [Recovered/Resolved]
  - Ascites [Recovered/Resolved]
